FAERS Safety Report 22754895 (Version 2)
Quarter: 2024Q3

REPORT INFORMATION
  Report Type: Spontaneous
  Country: US (occurrence: US)
  Receive Date: 20230727
  Receipt Date: 20240905
  Transmission Date: 20241017
  Serious: No
  Sender: ULTRAGENYX PHARMACEUTICAL
  Company Number: US-ULTRAGENYX PHARMACEUTICAL INC.-US-UGX-23-00703

PATIENT
  Sex: Female
  Weight: 10.5 kg

DRUGS (1)
  1. DOJOLVI [Suspect]
     Active Substance: TRIHEPTANOIN
     Indication: Very long-chain acyl-coenzyme A dehydrogenase deficiency
     Dosage: 7.6 MILLILITER, Q6H
     Route: 048
     Dates: start: 20221014

REACTIONS (1)
  - Steatorrhoea [Unknown]
